FAERS Safety Report 9418906 (Version 2)
Quarter: 2013Q3

REPORT INFORMATION
  Report Type: Spontaneous
  Country: GB (occurrence: GB)
  Receive Date: 20130725
  Receipt Date: 20130805
  Transmission Date: 20140515
  Serious: Yes (Other)
  Sender: FDA-Public Use
  Company Number: GB-009507513-1307GBR008967

PATIENT
  Age: 67 Year
  Sex: Male

DRUGS (1)
  1. COSOPT 20 MG/ML + 5 MG/ML, EYE DROPS, SOLUTION [Suspect]

REACTIONS (2)
  - Intraocular pressure increased [Unknown]
  - Product quality issue [Unknown]
